APPROVED DRUG PRODUCT: ATROPINE SULFATE
Active Ingredient: ATROPINE SULFATE
Strength: 0.4MG/ML (0.4MG/ML)
Dosage Form/Route: SOLUTION;INTRAVENOUS
Application: N214652 | Product #001
Applicant: ACCORD HEALTHCARE INC
Approved: Sep 29, 2020 | RLD: Yes | RS: No | Type: DISCN